FAERS Safety Report 9602135 (Version 2)
Quarter: 2013Q4

REPORT INFORMATION
  Report Type: Spontaneous
  Country: NZ (occurrence: NZ)
  Receive Date: 20131007
  Receipt Date: 20131030
  Transmission Date: 20140711
  Serious: No
  Sender: FDA-Public Use
  Company Number: NZ-ELI_LILLY_AND_COMPANY-NZ201309008975

PATIENT
  Sex: Male

DRUGS (1)
  1. ZYPREXA RELPREVV [Suspect]
     Indication: PRODUCT USED FOR UNKNOWN INDICATION
     Dosage: 300 MG, 2/W
     Route: 030

REACTIONS (6)
  - Injection site bruising [Recovered/Resolved]
  - Pain in extremity [Unknown]
  - Myalgia [Unknown]
  - Paraesthesia [Unknown]
  - Injection site haemorrhage [Unknown]
  - Drug dose omission [Unknown]
